FAERS Safety Report 9556986 (Version 1)
Quarter: 2013Q3

REPORT INFORMATION
  Report Type: Spontaneous
  Country: GB (occurrence: GB)
  Receive Date: 20130926
  Receipt Date: 20130926
  Transmission Date: 20140515
  Serious: Yes (Hospitalization)
  Sender: FDA-Public Use
  Company Number: PHHY2013GB104458

PATIENT
  Age: 1 Year
  Sex: Female
  Weight: 10 kg

DRUGS (3)
  1. AMOXICILLIN [Suspect]
     Indication: EAR INFECTION
     Dosage: 500 MG, QID
     Route: 048
     Dates: start: 20130821, end: 20130828
  2. PARACETAMOL [Concomitant]
  3. IBUPROFEN [Concomitant]

REACTIONS (7)
  - Contusion [Recovering/Resolving]
  - Swelling [Recovering/Resolving]
  - Pyrexia [Recovered/Resolved]
  - Vomiting [Recovered/Resolved]
  - Rash erythematous [Recovered/Resolved]
  - Urticaria [Recovered/Resolved]
  - Erythema multiforme [Recovering/Resolving]
